FAERS Safety Report 24819910 (Version 1)
Quarter: 2025Q1

REPORT INFORMATION
  Report Type: Spontaneous
  Country: GB (occurrence: GB)
  Receive Date: 20250108
  Receipt Date: 20250108
  Transmission Date: 20250409
  Serious: Yes (Disabling)
  Sender: DR REDDYS
  Company Number: None

PATIENT
  Age: 63 Year
  Sex: Male
  Weight: 69 kg

DRUGS (11)
  1. FEXOFENADINE [Suspect]
     Active Substance: FEXOFENADINE HYDROCHLORIDE
     Indication: Ill-defined disorder
     Dosage: TAKE ONE DAILY
     Dates: start: 20241206
  2. CETRABEN [Concomitant]
     Indication: Ill-defined disorder
     Dates: start: 20240712
  3. FORTISIP COMPACT PROTEIN [Concomitant]
     Indication: Ill-defined disorder
     Dosage: 125ML TWICE A DAY
     Dates: start: 20240712
  4. LANSOPRAZOLE [Concomitant]
     Active Substance: LANSOPRAZOLE
     Indication: Ill-defined disorder
     Dosage: TAKE ONE ONCE DAILY
     Dates: start: 20240712
  5. LEVETIRACETAM [Concomitant]
     Active Substance: LEVETIRACETAM
     Indication: Ill-defined disorder
     Dosage: ONE TABLET TWICE DAILY. THIS IS AN ALTERNATIVE ...
     Route: 048
     Dates: start: 20240712
  6. MOMETASONE [Concomitant]
     Active Substance: MOMETASONE
     Indication: Ill-defined disorder
     Dates: start: 20240712
  7. NUTRICREM [Concomitant]
     Indication: Ill-defined disorder
     Dosage: 125G ONCE A DAY
     Dates: start: 20240712
  8. ACETAMINOPHEN [Concomitant]
     Active Substance: ACETAMINOPHEN
     Indication: Ill-defined disorder
     Dates: start: 20240712
  9. PROPRANOLOL [Concomitant]
     Active Substance: PROPRANOLOL HYDROCHLORIDE
     Indication: Ill-defined disorder
     Dosage: TAKE ONE TWICE DAILY
     Dates: start: 20240712
  10. RIFAXIMIN [Concomitant]
     Active Substance: RIFAXIMIN
     Indication: Ill-defined disorder
     Dosage: TAKE ONE TWICE DAILY
     Dates: start: 20240712
  11. THIAMINE [Concomitant]
     Active Substance: THIAMINE
     Indication: Ill-defined disorder
     Dosage: TAKE ONE THREE TIMES DAILY- TO BE CRUSHED AND D...
     Dates: start: 20240712

REACTIONS (1)
  - Application site pruritus [Recovering/Resolving]
